FAERS Safety Report 20740364 (Version 9)
Quarter: 2023Q4

REPORT INFORMATION
  Report Type: Spontaneous
  Country: BR (occurrence: BR)
  Receive Date: 20220422
  Receipt Date: 20231215
  Transmission Date: 20240110
  Serious: Yes (Other)
  Sender: FDA-Public Use
  Company Number: BR-GLAXOSMITHKLINE-BR2022AMR067255

PATIENT

DRUGS (2)
  1. BENLYSTA [Suspect]
     Active Substance: BELIMUMAB
     Indication: Systemic lupus erythematosus
     Dosage: 120 MG
     Route: 042
     Dates: start: 20211215
  2. BENLYSTA [Suspect]
     Active Substance: BELIMUMAB
     Dosage: 6X120 MG
     Dates: start: 20211215

REACTIONS (9)
  - Ophthalmic herpes zoster [Recovered/Resolved]
  - Oropharyngeal pain [Unknown]
  - Pharyngeal inflammation [Unknown]
  - Malaise [Unknown]
  - Pain [Unknown]
  - Pulpitis dental [Recovered/Resolved]
  - Inappropriate schedule of product administration [Unknown]
  - Product dose omission issue [Unknown]
  - Product availability issue [Unknown]

NARRATIVE: CASE EVENT DATE: 20220401
